FAERS Safety Report 5180261-4 (Version None)
Quarter: 2006Q4

REPORT INFORMATION
  Report Type: 
  Country: None (occurrence: None)
  Receive Date: 20061212
  Receipt Date: 20061127
  Transmission Date: 20070319
  Serious: Yes (Hospitalization)
  Sender: FDA-Public Use
  Company Number: 2006RR-04713

PATIENT
  Age: 37 Year
  Sex: Female

DRUGS (2)
  1. OFLOXACIN [Suspect]
     Indication: PRODUCTIVE COUGH
     Dosage: UNK, UNK, UNK
  2. CLARITHROMYCIN [Concomitant]

REACTIONS (1)
  - TUBERCULOSIS [None]
